FAERS Safety Report 6344641-3 (Version None)
Quarter: 2009Q3

REPORT INFORMATION
  Report Type: 
  Country: None (occurrence: None)
  Receive Date: 20090903
  Receipt Date: 20090821
  Transmission Date: 20100115
  Serious: Yes (Life-Threatening, Hospitalization, Other)
  Sender: FDA-Public Use
  Company Number: AUR-APL-2009-00476

PATIENT
  Age: 74 Year
  Sex: Male

DRUGS (9)
  1. CITALOPRAM HYDROBROMIDE [Suspect]
     Dosage: 20MG, DAILY
  2. CIPROFLAXACIN [Suspect]
     Dosage: 50MG, BID
  3. FLUOXETINE [Suspect]
     Dosage: 20MG-DAILY
  4. REBOXETINE [Suspect]
     Dosage: 4MG-DAILY
  5. SULPIRIDE [Concomitant]
  6. OXYBUTYNIN CHLORIDE [Concomitant]
  7. ENALAPRIL MALEATE [Concomitant]
  8. ASPIRIN [Concomitant]
  9. DIAZEPAM [Concomitant]

REACTIONS (18)
  - ABASIA [None]
  - AGITATION [None]
  - CEREBELLAR INFARCTION [None]
  - CEREBELLAR ISCHAEMIA [None]
  - CHILLS [None]
  - COGNITIVE DISORDER [None]
  - CONFUSIONAL STATE [None]
  - DYSARTHRIA [None]
  - GAIT DISTURBANCE [None]
  - HYPERHIDROSIS [None]
  - HYPERREFLEXIA [None]
  - MUSCLE RIGIDITY [None]
  - MYDRIASIS [None]
  - MYOCLONUS [None]
  - RESTLESSNESS [None]
  - TACHYCARDIA [None]
  - TREMOR [None]
  - URINARY RETENTION [None]
